FAERS Safety Report 12136299 (Version 1)
Quarter: 2016Q1

REPORT INFORMATION
  Report Type: Spontaneous
  Country: US (occurrence: None)
  Receive Date: 20160301
  Receipt Date: 20160301
  Transmission Date: 20160526
  Serious: Yes (Hospitalization)
  Sender: FDA-Public Use
  Company Number: None

PATIENT
  Age: 25 Year
  Sex: Male

DRUGS (4)
  1. COLISTIMETHATE 150MG VIAL [Suspect]
     Active Substance: COLISTIMETHATE SODIUM
     Dosage: 150MG BID NEBULIZER (INHALED)
     Route: 055
  2. PULMOZYME [Suspect]
     Active Substance: DORNASE ALFA
     Indication: CYSTIC FIBROSIS
     Dosage: 1 VIAL QD INHALED
     Route: 055
  3. CREON [Concomitant]
     Active Substance: PANCRELIPASE AMYLASE\PANCRELIPASE LIPASE\PANCRELIPASE PROTEASE
  4. HYDROCODONE [Concomitant]
     Active Substance: HYDROCODONE

REACTIONS (2)
  - Cystic fibrosis [None]
  - Condition aggravated [None]

NARRATIVE: CASE EVENT DATE: 20160225
